FAERS Safety Report 4451929-X (Version None)
Quarter: 2004Q3

REPORT INFORMATION
  Report Type: 
  Country: None (occurrence: None)
  Receive Date: 20040917
  Receipt Date: 20040910
  Transmission Date: 20050211
  Serious: Yes (Other)
  Sender: FDA-Public Use
  Company Number: 200416846US

PATIENT
  Sex: Male

DRUGS (17)
  1. KETEK [Suspect]
     Indication: CELLULITIS
     Route: 048
     Dates: start: 20040902
  2. KETEK [Suspect]
     Indication: PNEUMONIA
     Route: 048
     Dates: start: 20040902
  3. METOPROLOL [Concomitant]
     Dosage: DOSE: NOT PROVIDED
  4. SSRI [Concomitant]
     Dosage: DOSE: NOT PROVIDED
  5. WELLBUTRIN [Concomitant]
     Dosage: DOSE: NOT PROVIDED
  6. ASPIRIN [Concomitant]
     Dosage: DOSE: NOT PROVIDED
  7. ALLOPURINOL [Concomitant]
     Dosage: DOSE: NOT PROVIDED
  8. HYDROCHLOROTHIAZIDE [Concomitant]
     Dosage: DOSE: NOT PROVIDED
  9. LASIX [Concomitant]
     Dosage: DOSE: NOT PROVIDED
  10. POTASSIUM CHLORIDE [Concomitant]
     Dosage: DOSE: NOT PROVIDED
  11. VOLTAREN [Concomitant]
     Dosage: DOSE: NOT PROVIDED
  12. ACEON [Concomitant]
     Dosage: DOSE: NOT PROVIDED
  13. HYDROCODONE [Concomitant]
     Dosage: DOSE: NOT PROVIDED
  14. CALCIUM [Concomitant]
     Dosage: DOSE: NOT PROVIDED
  15. MULTIVITAMINS, PLAIN [Concomitant]
     Dosage: DOSE: NOT PROVIDED
  16. COUMADIN [Concomitant]
     Dosage: DOSE: 6-7
  17. DETROL [Concomitant]
     Dosage: DOSE: NOT PROVIDED

REACTIONS (2)
  - HALLUCINATION, VISUAL [None]
  - MOVEMENT DISORDER [None]
